FAERS Safety Report 17088538 (Version 2)
Quarter: 2019Q4

REPORT INFORMATION
  Report Type: Spontaneous
  Country: DE (occurrence: DE)
  Receive Date: 20191128
  Receipt Date: 20191212
  Transmission Date: 20200122
  Serious: Yes (Congenital Anomaly)
  Sender: FDA-Public Use
  Company Number: NVSC2019DE048504

PATIENT

DRUGS (2)
  1. LACOSAMIDE. [Suspect]
     Active Substance: LACOSAMIDE
     Indication: FOETAL EXPOSURE DURING PREGNANCY
     Dosage: UNK, QD (THE MOTHER RECEIVED LACOSAMIDE DAILY FOR EPILEPSY DURING HER PREGNANCY)
     Route: 064
  2. VALPROATE [Suspect]
     Active Substance: VALPROIC ACID
     Indication: FOETAL EXPOSURE DURING PREGNANCY
     Dosage: UNK, QD (THE MOTHER RECEIVED VALPROATE FOR EPILEPSY DURING HER PREGNANCY)
     Route: 064

REACTIONS (3)
  - Multiple congenital abnormalities [Unknown]
  - Aberrant aortic arch [Unknown]
  - Foetal exposure during pregnancy [Unknown]
